FAERS Safety Report 11031401 (Version 2)
Quarter: 2015Q2

REPORT INFORMATION
  Report Type: Spontaneous
  Country: FR (occurrence: None)
  Receive Date: 20150413
  Receipt Date: 20150424
  Transmission Date: 20150821
  Serious: Yes (Hospitalization)
  Sender: FDA-Public Use
  Company Number: KAD201504-000794

PATIENT
  Age: 64 Year
  Sex: Male
  Weight: 82 kg

DRUGS (8)
  1. VIEKIRAX [Suspect]
     Active Substance: OMBITASVIR\PARITAPREVIR\RITONAVIR
     Indication: CHRONIC HEPATITIS C
     Dosage: TABLET, 12.5/75/50 MG X 2  (1 DAILY IN AM)
     Route: 048
     Dates: start: 20150122
  2. ZYLORIC (ALLOPURINOL) [Concomitant]
     Active Substance: ALLOPURINOL
  3. COVERSYL (PERINDOPRIL ARGININE) [Concomitant]
     Active Substance: PERINDOPRIL
  4. VASTEN (PRAVASTATIN SODIUM) [Concomitant]
  5. KARDEGIC [Concomitant]
     Active Substance: ASPIRIN LYSINE
  6. RIBAVIRIN 200 MG TABLETS [Suspect]
     Active Substance: RIBAVIRIN
     Indication: CHRONIC HEPATITIS C
     Dosage: TABLET, 200 MG X 3 (AM, PM)
     Route: 048
     Dates: start: 20150122, end: 20150325
  7. ART (DIACEREIN) (DIACEREIN) [Concomitant]
  8. AMLOR (AMLODIPINE BESILATE) [Concomitant]
     Active Substance: AMLODIPINE BESYLATE

REACTIONS (1)
  - Gout [None]

NARRATIVE: CASE EVENT DATE: 20150320
